FAERS Safety Report 19494758 (Version 2)
Quarter: 2021Q3

REPORT INFORMATION
  Report Type: Report from Study
  Country: CA (occurrence: CA)
  Receive Date: 20210705
  Receipt Date: 20210726
  Transmission Date: 20211014
  Serious: Yes (Other)
  Sender: FDA-Public Use
  Company Number: NVSC2021CA125889

PATIENT
  Sex: Female

DRUGS (1)
  1. PIQRAY [Suspect]
     Active Substance: ALPELISIB
     Indication: BREAST CANCER METASTATIC
     Dosage: 1 DF, QD
     Route: 065
     Dates: start: 20210514

REACTIONS (6)
  - Malignant neoplasm progression [Unknown]
  - Pruritus [Unknown]
  - Pancreatitis [Unknown]
  - Blood glucose abnormal [Unknown]
  - Breast cancer metastatic [Unknown]
  - Rash [Unknown]
